FAERS Safety Report 5141916-0 (Version None)
Quarter: 2006Q4

REPORT INFORMATION
  Report Type: 
  Country: None (occurrence: None)
  Receive Date: 20060919
  Receipt Date: 20060522
  Transmission Date: 20070319
  Serious: No
  Sender: FDA-Public Use
  Company Number: 2006US001130

PATIENT
  Age: 81 Year
  Sex: Female

DRUGS (1)
  1. VESICARE [Suspect]
     Indication: DRUG USE FOR UNKNOWN INDICATION
     Dosage: 10 MG, UID/QD, ORAL
     Route: 048
     Dates: start: 20060509

REACTIONS (4)
  - CONSTIPATION [None]
  - GENITAL BURNING SENSATION [None]
  - STOMACH DISCOMFORT [None]
  - VOMITING [None]
